FAERS Safety Report 8036794 (Version 2)
Quarter: 2012Q4

REPORT INFORMATION
  Report Type: 
  Country: US (occurrence: US)
  Receive Date: 20110715
  Receipt Date: 20121116
  Transmission Date: 20130627
  Serious: Yes (Hospitalization, Other)
  Sender: FDA-Public Use
  Company Number: US-AMGEN-USASP2011033687

PATIENT
  Sex: Female

DRUGS (3)
  1. ENBREL [Suspect]
     Indication: RHEUMATOID ARTHRITIS
     Dosage: 50 mg, qwk
     Dates: start: 20030101
  2. MEDROL                             /00049601/ [Concomitant]
     Dosage: UNK
  3. PREDNISONE                         /00044702/ [Concomitant]
     Dosage: UNK

REACTIONS (23)
  - Pulmonary embolism [Recovered/Resolved]
  - Atrial fibrillation [Not Recovered/Not Resolved]
  - Hypotension [Recovered/Resolved]
  - Urine output decreased [Recovered/Resolved]
  - Ascites [Recovered/Resolved]
  - Contusion [Recovered/Resolved]
  - Intra-abdominal haemorrhage [Recovered/Resolved]
  - Chronic obstructive pulmonary disease [Not Recovered/Not Resolved]
  - Depression [Unknown]
  - Cardiac failure congestive [Recovered/Resolved]
  - Bronchitis [Recovered/Resolved]
  - Rheumatoid arthritis [Not Recovered/Not Resolved]
  - Ventricular extrasystoles [Recovered/Resolved]
  - Drug hypersensitivity [Not Recovered/Not Resolved]
  - Weight decreased [Recovered/Resolved]
  - Ageusia [Recovered/Resolved]
  - Weight increased [Recovered/Resolved]
  - Fluid overload [Recovered/Resolved]
  - Red blood cell sedimentation rate increased [Recovered/Resolved]
  - Fatigue [Not Recovered/Not Resolved]
  - Pain in extremity [Not Recovered/Not Resolved]
  - Cutaneous vasculitis [Unknown]
  - Sinusitis [Recovered/Resolved]
